FAERS Safety Report 9925338 (Version 3)
Quarter: 2015Q3

REPORT INFORMATION
  Report Type: Report from Study
  Country: NL (occurrence: NL)
  Receive Date: 20140226
  Receipt Date: 20150708
  Transmission Date: 20151125
  Serious: Yes (Other)
  Sender: FDA-Public Use
  Company Number: NL-GLAXOSMITHKLINE-Z0018095A

PATIENT
  Age: 73 Year
  Sex: Female

DRUGS (9)
  1. CYCLOPHOSPHAMIDE. [Suspect]
     Active Substance: CYCLOPHOSPHAMIDE
     Indication: CHRONIC LYMPHOCYTIC LEUKAEMIA
     Dosage: 1400 MG, Q3W
     Route: 042
     Dates: start: 20111122, end: 20120308
  2. PREDNISON [Suspect]
     Active Substance: PREDNISONE
     Indication: CHRONIC LYMPHOCYTIC LEUKAEMIA
     Dosage: 100 MG, Q3W
     Route: 048
     Dates: start: 20111122, end: 20120308
  3. DOXORUBICINE [Suspect]
     Active Substance: DOXORUBICIN
     Indication: CHRONIC LYMPHOCYTIC LEUKAEMIA
     Dosage: 90 MG, Q3W
     Route: 042
     Dates: start: 20111122, end: 20121208
  4. OFATUMUMAB [Suspect]
     Active Substance: OFATUMUMAB
     Indication: CHRONIC LYMPHOCYTIC LEUKAEMIA
     Dosage: UNK, CYC
     Route: 042
     Dates: start: 20120426
  5. RITUXIMAB [Suspect]
     Active Substance: RITUXIMAB
     Dosage: 700 MG, SINGLE
     Route: 042
     Dates: start: 201108, end: 201108
  6. CHLORAMBUCIL [Suspect]
     Active Substance: CHLORAMBUCIL
     Indication: CHRONIC LYMPHOCYTIC LEUKAEMIA
     Dosage: 6 MG, Q3W
     Route: 042
     Dates: start: 20110824, end: 20110920
  7. CHLORAMBUCIL [Suspect]
     Active Substance: CHLORAMBUCIL
     Dosage: 8 MG, Q3W
     Route: 042
     Dates: start: 20110921, end: 20111004
  8. VINCRISTINE [Suspect]
     Active Substance: VINCRISTINE
     Indication: CHRONIC LYMPHOCYTIC LEUKAEMIA
     Dosage: 2 MG, Q3W
     Route: 042
     Dates: start: 20111122, end: 20120308
  9. RITUXIMAB [Suspect]
     Active Substance: RITUXIMAB
     Indication: CHRONIC LYMPHOCYTIC LEUKAEMIA
     Dosage: 700 MG, Q3W
     Route: 042
     Dates: start: 20111213, end: 20120308

REACTIONS (1)
  - Refractory anaemia with an excess of blasts [Not Recovered/Not Resolved]

NARRATIVE: CASE EVENT DATE: 20121128
